FAERS Safety Report 4428518-6 (Version None)
Quarter: 2004Q3

REPORT INFORMATION
  Report Type: 
  Country: None (occurrence: None)
  Receive Date: 20040816
  Receipt Date: 20040730
  Transmission Date: 20050211
  Serious: Yes (Hospitalization)
  Sender: FDA-Public Use
  Company Number: A03200402559

PATIENT
  Age: 70 Year
  Sex: Male
  Weight: 104.3273 kg

DRUGS (24)
  1. PLAVIX [Suspect]
     Indication: CORONARY ARTERY DISEASE
     Dosage: 75 MG QD - ORAL
     Route: 048
     Dates: start: 20030101, end: 20040601
  2. ASPIRIN [Suspect]
     Indication: CORONARY ARTERY DISEASE
     Dosage: 81 MG ORAL
     Route: 048
     Dates: end: 20040601
  3. NADOLOL [Concomitant]
  4. AMLODIPINE [Concomitant]
  5. VALSARTAN [Concomitant]
  6. FEXOFENADINE HYDROCHLORIDE [Concomitant]
  7. DONEPEZIL HCL [Concomitant]
  8. ATORVASTATIN [Concomitant]
  9. NICOTINIC ACID [Concomitant]
  10. NATEGLINIDE [Concomitant]
  11. INSULIN GLARGINE [Concomitant]
  12. INSULIN ASPART [Concomitant]
  13. VITAMIN C [Concomitant]
  14. VITAMINS NOS [Concomitant]
  15. FISH OIL [Concomitant]
  16. FOLIC ACID [Concomitant]
  17. DOCUSATE SODIUM [Concomitant]
  18. SOY ISOFLAVONES [Concomitant]
  19. FLAXSEED OIL [Concomitant]
  20. METHYLSULFONAL [Concomitant]
  21. CHONDROITIN SULFATE [Concomitant]
  22. GLUCOSAMINE [Concomitant]
  23. UBIDECARENONE [Concomitant]
  24. PSYLLIUM FIBER [Concomitant]

REACTIONS (7)
  - CONTUSION [None]
  - DEEP VEIN THROMBOSIS [None]
  - DIFFICULTY IN WALKING [None]
  - FALL [None]
  - LOCAL SWELLING [None]
  - MUSCLE INJURY [None]
  - PAIN [None]
